FAERS Safety Report 9888483 (Version 4)
Quarter: 2015Q2

REPORT INFORMATION
  Report Type: Spontaneous
  Country: US (occurrence: US)
  Receive Date: 20140211
  Receipt Date: 20150625
  Transmission Date: 20150821
  Serious: Yes (Other)
  Sender: FDA-Public Use
  Company Number: US-BAYER-2014-019684

PATIENT
  Age: 24 Year
  Sex: Female
  Weight: 61.22 kg

DRUGS (5)
  1. LEVAQUIN [Concomitant]
     Active Substance: LEVOFLOXACIN
  2. PHENAZOPYRIDINE HYDROCHLORIDE. [Concomitant]
     Active Substance: PHENAZOPYRIDINE HYDROCHLORIDE
  3. MIRENA [Suspect]
     Active Substance: LEVONORGESTREL
     Dosage: 20 MCG/24HR, CONT
     Route: 015
     Dates: start: 20100309, end: 20110413
  4. DIFLUCAN [Concomitant]
     Active Substance: FLUCONAZOLE
  5. MACROBID [Concomitant]
     Active Substance: NITROFURANTOIN\NITROFURANTOIN MONOHYDRATE

REACTIONS (7)
  - Injury [None]
  - Device issue [None]
  - Abdominal pain [None]
  - Urinary tract infection [None]
  - Pain [None]
  - Uterine perforation [None]
  - Pelvic haemorrhage [None]

NARRATIVE: CASE EVENT DATE: 201104
